FAERS Safety Report 7442223-3 (Version None)
Quarter: 2011Q2

REPORT INFORMATION
  Report Type: 
  Country: None (occurrence: None)
  Receive Date: 20110428
  Receipt Date: 20110425
  Transmission Date: 20111010
  Serious: Yes (Other)
  Sender: FDA-Public Use
  Company Number: US-PFIZER INC-2011089281

PATIENT
  Sex: Female

DRUGS (1)
  1. CHANTIX [Suspect]
     Indication: SMOKING CESSATION THERAPY
     Dosage: UNK
     Route: 048
     Dates: start: 20110301

REACTIONS (5)
  - HALLUCINATION, VISUAL [None]
  - HALLUCINATION [None]
  - HEART RATE INCREASED [None]
  - HALLUCINATION, AUDITORY [None]
  - INSOMNIA [None]
